FAERS Safety Report 8142820-6 (Version None)
Quarter: 2012Q1

REPORT INFORMATION
  Report Type: 
  Country: None (occurrence: None)
  Receive Date: 20120216
  Receipt Date: 20120207
  Transmission Date: 20120608
  Serious: Yes (Hospitalization, Other)
  Sender: FDA-Public Use
  Company Number: US-ASTRAZENECA-2011SE37060

PATIENT
  Sex: Female

DRUGS (21)
  1. ALBUTEROL SULFATE [Concomitant]
     Dosage: INHALER
  2. EPINEPHRINE [Concomitant]
     Dosage: 0.3 MG/0.3
  3. LORAZEPAM [Concomitant]
  4. HYDRALAZINE HCL [Concomitant]
  5. AMITRIPTYLINE HCL [Concomitant]
  6. NEXIUM [Suspect]
     Route: 048
  7. ROLAIDS [Concomitant]
     Dosage: AS NEEDED
  8. CALCIUM CARBONATE [Concomitant]
  9. NEXIUM [Suspect]
     Indication: GASTROOESOPHAGEAL REFLUX DISEASE
     Route: 048
  10. NEXIUM [Suspect]
     Route: 048
  11. HYDROXYZINE [Concomitant]
  12. PROMETHAZINE [Concomitant]
  13. NEXIUM [Suspect]
     Indication: HIATUS HERNIA
     Route: 048
  14. NEXIUM [Suspect]
     Indication: DYSKINESIA OESOPHAGEAL
     Route: 048
  15. CYCLOBENZAPRINE [Concomitant]
  16. BENEFIBER [Concomitant]
     Dosage: ONCE A DAY
  17. MUPIROCIN [Concomitant]
     Route: 061
  18. AMITIZA [Concomitant]
  19. WOMENS PROACTIVE VITAMIN [Concomitant]
     Dosage: ONE A DAY
  20. NEXIUM [Suspect]
     Route: 048
  21. MIRALAX [Concomitant]
     Dosage: ONCE A DAY AND ONCE AT NIGHT

REACTIONS (28)
  - DIVERTICULUM [None]
  - INFLAMMATORY BOWEL DISEASE [None]
  - ANXIETY [None]
  - OFF LABEL USE [None]
  - SLEEP DISORDER DUE TO GENERAL MEDICAL CONDITION, INSOMNIA TYPE [None]
  - TACHYCARDIA [None]
  - GASTROINTESTINAL DISORDER [None]
  - FUNGAL INFECTION [None]
  - NEURALGIA [None]
  - DEPRESSION [None]
  - THYROID DISORDER [None]
  - PAIN [None]
  - NAUSEA [None]
  - VOMITING [None]
  - DEHYDRATION [None]
  - HYPERHIDROSIS [None]
  - DYSKINESIA OESOPHAGEAL [None]
  - HYPERTENSION [None]
  - THROMBOSIS [None]
  - NASOPHARYNGITIS [None]
  - HIATUS HERNIA [None]
  - MIGRAINE [None]
  - DYSPEPSIA [None]
  - HEPATITIS C [None]
  - GASTROOESOPHAGEAL REFLUX DISEASE [None]
  - DRUG DOSE OMISSION [None]
  - INAPPROPRIATE SCHEDULE OF DRUG ADMINISTRATION [None]
  - MALAISE [None]
